FAERS Safety Report 5293210-5 (Version None)
Quarter: 2007Q2

REPORT INFORMATION
  Report Type: 
  Country: None (occurrence: None)
  Receive Date: 20070404
  Receipt Date: 20070323
  Transmission Date: 20071010
  Serious: Yes (Disabling, Other)
  Sender: FDA-Public Use
  Company Number: CHNY2007AU01035

PATIENT
  Age: 32 Year
  Weight: 40 kg

DRUGS (1)
  1. AMCAL (NCH)(NICOTINE) TRANS-THERAPEUTIC-SYSTEM [Suspect]
     Dosage: 21 MG, QD, TRANSDERMAL
     Route: 062

REACTIONS (10)
  - APPLICATION SITE BURN [None]
  - APPLICATION SITE ERYTHEMA [None]
  - APPLICATION SITE PAIN [None]
  - APPLICATION SITE REACTION [None]
  - APPLICATION SITE URTICARIA [None]
  - APPLICATION SITE VESICLES [None]
  - HYPERAESTHESIA [None]
  - PAIN [None]
  - RASH MACULO-PAPULAR [None]
  - SCAR [None]
